FAERS Safety Report 12773743 (Version 1)
Quarter: 2016Q3

REPORT INFORMATION
  Report Type: Spontaneous
  Country: US (occurrence: US)
  Receive Date: 20160923
  Receipt Date: 20160923
  Transmission Date: 20161109
  Serious: No
  Sender: FDA-Public Use
  Company Number: ALCN2016US006528

PATIENT
  Sex: Female

DRUGS (2)
  1. TEARS NATURALE FORTE [Concomitant]
     Active Substance: DEXTRAN 70\GLYCERIN\HYPROMELLOSES
     Indication: PRODUCT USED FOR UNKNOWN INDICATION
     Route: 047
  2. GENTEAL MILD TO MODERATE [Suspect]
     Active Substance: HYPROMELLOSE 2910 (4000 MPA.S)
     Indication: PRODUCT USED FOR UNKNOWN INDICATION
     Route: 047

REACTIONS (1)
  - Eye irritation [Unknown]
